FAERS Safety Report 6617230-0 (Version None)
Quarter: 2010Q1

REPORT INFORMATION
  Report Type: 
  Country: None (occurrence: None)
  Receive Date: 20100307
  Receipt Date: 20081015
  Transmission Date: 20100710
  Serious: No
  Sender: FDA-Public Use
  Company Number: US-BAYER-200835143NA

PATIENT
  Age: 37 Year
  Sex: Female

DRUGS (1)
  1. EOVIST [Suspect]
     Indication: NUCLEAR MAGNETIC RESONANCE IMAGING ABDOMINAL
     Dosage: TO RING FINGER OF LEFT HAND ^IN THE WEB^ WITH A 24 GAUGE ANGIO.
     Route: 042
     Dates: start: 20080912, end: 20080912

REACTIONS (9)
  - BURNING SENSATION [None]
  - HEART RATE INCREASED [None]
  - HYPOAESTHESIA [None]
  - MALAISE [None]
  - NERVE INJURY [None]
  - PERIPHERAL COLDNESS [None]
  - POOR PERIPHERAL CIRCULATION [None]
  - SKIN DISCOLOURATION [None]
  - VASOSPASM [None]
